FAERS Safety Report 8961596 (Version 1)
Quarter: 2012Q4

REPORT INFORMATION
  Report Type: 
  Country: US (occurrence: US)
  Receive Date: 20121213
  Receipt Date: 20121213
  Transmission Date: 20130627
  Serious: No
  Sender: FDA-Public Use
  Company Number: US-ALLERGAN-1216412US

PATIENT
  Sex: Female

DRUGS (3)
  1. LUMIGAN� 0.01% [Suspect]
     Indication: INCREASED INTRAOCULAR PRESSURE
     Dosage: UNK
     Route: 047
     Dates: start: 20121120
  2. LUMIGAN� 0.01% [Suspect]
     Dosage: UNK
     Route: 047
     Dates: start: 2011, end: 201210
  3. GAS X [Concomitant]
     Indication: COLITIS
     Dosage: UNK UNK, prn
     Route: 048

REACTIONS (13)
  - Dysphagia [Unknown]
  - Oedema peripheral [Recovering/Resolving]
  - Local swelling [Unknown]
  - Abdominal distension [Unknown]
  - Muscle tightness [Unknown]
  - Paraesthesia [Unknown]
  - Paraesthesia oral [Unknown]
  - Tooth disorder [Unknown]
  - Hypoaesthesia [Unknown]
  - Hypoaesthesia oral [Unknown]
  - Tooth disorder [Unknown]
  - Anorectal disorder [Unknown]
  - Micturition urgency [Unknown]
